FAERS Safety Report 23323198 (Version 1)
Quarter: 2023Q4

REPORT INFORMATION
  Report Type: Spontaneous
  Country: US (occurrence: None)
  Receive Date: 20231220
  Receipt Date: 20231220
  Transmission Date: 20240110
  Serious: No
  Sender: FDA-Public Use
  Company Number: US-ROCHE-3332120

PATIENT
  Sex: Male

DRUGS (2)
  1. RITUXAN [Suspect]
     Active Substance: RITUXIMAB
     Indication: Product used for unknown indication
     Dosage: 1000MG/1 LITER ;ONGOING: UNKNOWN
     Route: 041
     Dates: start: 20220923
  2. RITUXAN [Suspect]
     Active Substance: RITUXIMAB
     Route: 041
     Dates: start: 20230414

REACTIONS (2)
  - Product preparation error [Unknown]
  - No adverse event [Unknown]
